FAERS Safety Report 16907576 (Version 1)
Quarter: 2019Q4

REPORT INFORMATION
  Report Type: Spontaneous
  Country: HU (occurrence: HU)
  Receive Date: 20191011
  Receipt Date: 20191011
  Transmission Date: 20200122
  Serious: Yes (Other)
  Sender: FDA-Public Use
  Company Number: HU-GLAXOSMITHKLINE-HU2019GSK150479

PATIENT
  Age: 7 Year
  Sex: Female

DRUGS (2)
  1. VALPROATE [Concomitant]
     Active Substance: VALPROIC ACID
     Indication: SEIZURE
     Dosage: UNK
  2. LAMOTRIGINE. [Suspect]
     Active Substance: LAMOTRIGINE
     Indication: EPILEPSY
     Dosage: UNK

REACTIONS (10)
  - Visual impairment [Recovered/Resolved]
  - Dermatitis bullous [Recovered/Resolved]
  - Sepsis [Recovered/Resolved]
  - Skin exfoliation [Recovered/Resolved]
  - Skin lesion [Recovered/Resolved]
  - Cyanosis [Recovered/Resolved]
  - Tonic clonic movements [Recovered/Resolved]
  - Mucosal dryness [Recovered/Resolved]
  - Toxic epidermal necrolysis [Recovered/Resolved]
  - Drug hypersensitivity [Recovered/Resolved]
